APPROVED DRUG PRODUCT: SODIUM ACETATE
Active Ingredient: SODIUM ACETATE
Strength: 200MEQ/100ML (2MEQ/ML)
Dosage Form/Route: SOLUTION;INTRAVENOUS
Application: A219826 | Product #002 | TE Code: AP
Applicant: SOMERSET THERAPEUTICS LLC
Approved: Sep 18, 2025 | RLD: No | RS: No | Type: RX